FAERS Safety Report 5642638-X (Version None)
Quarter: 2008Q1

REPORT INFORMATION
  Report Type: 
  Country: None (occurrence: None)
  Receive Date: 20080228
  Receipt Date: 20080219
  Transmission Date: 20080703
  Serious: Yes (Other)
  Sender: FDA-Public Use
  Company Number: MX-JNJFOC-20080205011

PATIENT
  Age: 48 Year
  Sex: Male

DRUGS (2)
  1. ELEQUINE [Suspect]
     Indication: BRONCHITIS
     Route: 048
  2. AMBROXOL [Concomitant]
     Indication: COUGH
     Route: 048

REACTIONS (3)
  - CONFUSIONAL STATE [None]
  - HYPOTONIA [None]
  - VISION BLURRED [None]
